FAERS Safety Report 21143760 (Version 2)
Quarter: 2022Q3

REPORT INFORMATION
  Report Type: Report from Study
  Country: IT (occurrence: IT)
  Receive Date: 20220728
  Receipt Date: 20220815
  Transmission Date: 20221026
  Serious: Yes (Other)
  Sender: FDA-Public Use
  Company Number: None

PATIENT
  Age: 47 Year
  Sex: Male

DRUGS (1)
  1. XANAX [Suspect]
     Active Substance: ALPRAZOLAM
     Indication: Insomnia
     Dosage: 20 ML / TOTAL
     Route: 048
     Dates: start: 20220618, end: 20220618

REACTIONS (5)
  - Off label use [Unknown]
  - Overdose [Unknown]
  - Sopor [Unknown]
  - Drug abuse [Unknown]
  - Drug level increased [Unknown]

NARRATIVE: CASE EVENT DATE: 20220618
